FAERS Safety Report 12059391 (Version 1)
Quarter: 2016Q1

REPORT INFORMATION
  Report Type: Spontaneous
  Country: CZ (occurrence: CZ)
  Receive Date: 20160210
  Receipt Date: 20160210
  Transmission Date: 20160526
  Serious: Yes (Other)
  Sender: FDA-Public Use
  Company Number: CZ-ACTAVIS-2016-02190

PATIENT
  Sex: Female

DRUGS (3)
  1. NIMESULIDE (UNKNOWN) [Suspect]
     Active Substance: NIMESULIDE
     Indication: OVERDOSE
     Dosage: 100 MG, BID
     Route: 065
  2. IBUPROFEN (UNKNOWN) [Suspect]
     Active Substance: IBUPROFEN
     Indication: PRODUCT USED FOR UNKNOWN INDICATION
     Dosage: UNK
     Route: 065
  3. PARACETAMOL (UNKNOWN) [Suspect]
     Active Substance: ACETAMINOPHEN
     Indication: OVERDOSE
     Dosage: 3 G, DAILY
     Route: 065

REACTIONS (2)
  - Overdose [Unknown]
  - Acute hepatic failure [Recovered/Resolved]
